FAERS Safety Report 8625407-8 (Version None)
Quarter: 2012Q3

REPORT INFORMATION
  Report Type: 
  Country: None (occurrence: None)
  Receive Date: 20120827
  Receipt Date: 20120815
  Transmission Date: 20120928
  Serious: Yes (Hospitalization)
  Sender: FDA-Public Use
  Company Number: US-ELI_LILLY_AND_COMPANY-US201203005822

PATIENT
  Sex: Female
  Weight: 88.435 kg

DRUGS (4)
  1. FORTEO [Suspect]
     Dosage: 20 UG, QD
     Dates: start: 20120201
  2. FORTEO [Suspect]
     Dosage: 20 UG, QD
     Dates: start: 20120201
  3. NEXIUM [Concomitant]
  4. FORTEO [Suspect]
     Indication: OSTEOPOROSIS
     Dosage: 20 UG, QD
     Dates: start: 20120201

REACTIONS (7)
  - DIARRHOEA [None]
  - BONE PAIN [None]
  - JOINT INJURY [None]
  - OESOPHAGOGASTRIC FUNDOPLASTY [None]
  - VOMITING [None]
  - ARTHRALGIA [None]
  - PELVIC PAIN [None]
